FAERS Safety Report 23600052 (Version 7)
Quarter: 2025Q4

REPORT INFORMATION
  Report Type: Spontaneous
  Country: EU (occurrence: EU)
  Receive Date: 20240306
  Receipt Date: 20251124
  Transmission Date: 20260118
  Serious: Yes (Death, Hospitalization, Other)
  Sender: NOVARTIS
  Company Number: EU-002147023-NVSC2020DE043427

PATIENT
  Age: 68 Year
  Sex: Male

DRUGS (52)
  1. CYCLOSPORINE [Suspect]
     Active Substance: CYCLOSPORINE
     Indication: Dermatitis
     Dosage: UNK
     Route: 065
  2. CYCLOSPORINE [Suspect]
     Active Substance: CYCLOSPORINE
     Indication: Stomatitis
     Dosage: UNK
     Route: 065
  3. CYCLOSPORINE [Suspect]
     Active Substance: CYCLOSPORINE
     Indication: Dry eye
  4. CYCLOSPORINE [Suspect]
     Active Substance: CYCLOSPORINE
     Indication: Immunosuppressant drug therapy
  5. BENDAMUSTINE HYDROCHLORIDE [Suspect]
     Active Substance: BENDAMUSTINE HYDROCHLORIDE
     Indication: Follicular lymphoma stage IV
     Dosage: UNK (CYCLICAL)
     Route: 042
     Dates: start: 2013
  6. BENDAMUSTINE HYDROCHLORIDE [Suspect]
     Active Substance: BENDAMUSTINE HYDROCHLORIDE
     Indication: Lymphoma
     Dosage: UNK (CYCLICAL)
     Route: 042
     Dates: start: 2016
  7. TACROLIMUS [Suspect]
     Active Substance: TACROLIMUS
     Indication: Dermatitis
     Dosage: 1 MG, QD (D164)
     Route: 048
  8. TACROLIMUS [Suspect]
     Active Substance: TACROLIMUS
     Indication: Stomatitis
     Dosage: 1 MG, QD (4-6 UG/L)
     Route: 048
  9. TACROLIMUS [Suspect]
     Active Substance: TACROLIMUS
     Indication: Dry eye
  10. TACROLIMUS [Suspect]
     Active Substance: TACROLIMUS
     Indication: Immunosuppressant drug therapy
  11. TACROLIMUS [Suspect]
     Active Substance: TACROLIMUS
     Indication: Follicular lymphoma stage IV
  12. TACROLIMUS [Suspect]
     Active Substance: TACROLIMUS
     Indication: Off label use
  13. INFLIXIMAB [Suspect]
     Active Substance: INFLIXIMAB
     Indication: Stomatitis
     Dosage: 850 MG, QW (425 MG, TWICE WEEKLY (D112))
     Route: 042
  14. INFLIXIMAB [Suspect]
     Active Substance: INFLIXIMAB
     Indication: Dermatitis
     Dosage: 425 MG
     Route: 042
  15. INFLIXIMAB [Suspect]
     Active Substance: INFLIXIMAB
     Indication: Dry eye
     Dosage: UNK
     Route: 065
  16. INFLIXIMAB [Suspect]
     Active Substance: INFLIXIMAB
     Indication: Immunosuppressant drug therapy
  17. PREDNISOLONE [Suspect]
     Active Substance: PREDNISOLONE
     Indication: Dry eye
     Dosage: 90 MG, QD
     Route: 065
  18. PREDNISOLONE [Suspect]
     Active Substance: PREDNISOLONE
     Indication: Dermatitis
     Dosage: 50 MG, QD (D161)
     Route: 065
  19. PREDNISOLONE [Suspect]
     Active Substance: PREDNISOLONE
     Indication: Stomatitis
     Dosage: 60 MG, QD
     Route: 065
  20. PREDNISOLONE [Suspect]
     Active Substance: PREDNISOLONE
     Indication: Immunosuppressant drug therapy
     Dosage: 70 MG, QD (D173-179)
     Route: 065
  21. PREDNISOLONE [Suspect]
     Active Substance: PREDNISOLONE
     Dosage: 40 MG, QD (D118-152)
     Route: 065
  22. PREDNISOLONE [Suspect]
     Active Substance: PREDNISOLONE
     Dosage: 80 MG, QD
     Route: 065
  23. PREDNISOLONE [Suspect]
     Active Substance: PREDNISOLONE
     Dosage: 30 MG, QD (D159)
     Route: 065
  24. PREDNISOLONE [Suspect]
     Active Substance: PREDNISOLONE
     Dosage: 100 MG, QD ((D84) (D164)(78) (D106) (D107))
     Route: 042
  25. PREDNISOLONE [Suspect]
     Active Substance: PREDNISOLONE
     Dosage: 10 MG, QD (D77)
     Route: 042
  26. PREDNISOLONE [Suspect]
     Active Substance: PREDNISOLONE
     Dosage: 20 MG, QD (D86-100)
     Route: 048
  27. PREDNISOLONE [Suspect]
     Active Substance: PREDNISOLONE
     Dosage: 5 MG, QD (D186-239)
     Route: 065
  28. PREDNISOLONE [Suspect]
     Active Substance: PREDNISOLONE
     Dosage: 180 MG (TOTAL DOSE (D106))
     Route: 042
  29. PREDNISOLONE [Suspect]
     Active Substance: PREDNISOLONE
     Dosage: 100 MG, QD
     Route: 065
  30. PREDNISOLONE [Suspect]
     Active Substance: PREDNISOLONE
     Dosage: 100 MG, QD
     Route: 048
  31. PREDNISOLONE [Suspect]
     Active Substance: PREDNISOLONE
     Dosage: 100 MG, QD
     Route: 042
  32. PREDNISOLONE [Suspect]
     Active Substance: PREDNISOLONE
     Dosage: 180 MG
     Route: 042
  33. PREDNISOLONE [Suspect]
     Active Substance: PREDNISOLONE
     Dosage: 5 MG, QD
     Route: 065
  34. PREDNISOLONE [Suspect]
     Active Substance: PREDNISOLONE
     Dosage: 50 MG, QD
     Route: 065
  35. ANAKINRA [Suspect]
     Active Substance: ANAKINRA
     Indication: Dermatitis
     Dosage: 100 MG, QD (D203)
     Route: 058
  36. ANAKINRA [Suspect]
     Active Substance: ANAKINRA
     Indication: Stomatitis
     Dosage: 100 MG, QD (D203)
     Route: 058
  37. ANAKINRA [Suspect]
     Active Substance: ANAKINRA
     Indication: Dry eye
     Dosage: 100 MG, QD (D203)
     Route: 058
  38. ANAKINRA [Suspect]
     Active Substance: ANAKINRA
     Indication: Immunosuppressant drug therapy
     Dosage: 100 MG, QD
     Route: 058
  39. ANAKINRA [Suspect]
     Active Substance: ANAKINRA
     Indication: Dry eye
     Dosage: 100 MG, QD
     Route: 058
  40. ANAKINRA [Suspect]
     Active Substance: ANAKINRA
     Dosage: 100 MG, QD (D203)
     Route: 058
  41. ANAKINRA [Suspect]
     Active Substance: ANAKINRA
     Dosage: 100 MG, QD
     Route: 058
  42. ANAKINRA [Suspect]
     Active Substance: ANAKINRA
     Dosage: UNK
     Route: 065
  43. ATEZOLIZUMAB [Suspect]
     Active Substance: ATEZOLIZUMAB
     Indication: Follicular lymphoma stage IV
     Dosage: 1200 MG (CYCLICAL) (D1 OF C2-6)
     Route: 065
     Dates: start: 2017
  44. ATEZOLIZUMAB [Suspect]
     Active Substance: ATEZOLIZUMAB
     Indication: Lymphoma
     Dosage: 1200 MG
     Route: 065
     Dates: start: 2017
  45. OBINUTUZUMAB [Suspect]
     Active Substance: OBINUTUZUMAB
     Indication: Follicular lymphoma stage IV
     Dosage: 1000 MG (CYCLICAL) (D1, D8, D15 OF C1; D1 OF C2-6)
     Route: 065
     Dates: start: 2017
  46. OBINUTUZUMAB [Suspect]
     Active Substance: OBINUTUZUMAB
     Indication: Lymphoma
  47. POLATUZUMAB VEDOTIN [Suspect]
     Active Substance: POLATUZUMAB VEDOTIN
     Indication: Follicular lymphoma stage IV
     Dosage: 1.8 MG/KG (CYCLICAL) (D1 OF C1-6)
     Route: 065
     Dates: start: 2017
  48. POLATUZUMAB VEDOTIN [Suspect]
     Active Substance: POLATUZUMAB VEDOTIN
     Indication: Lymphoma
  49. RITUXIMAB [Suspect]
     Active Substance: RITUXIMAB
     Indication: Follicular lymphoma stage IV
     Dosage: UNK
     Route: 065
     Dates: start: 2013, end: 2015
  50. RITUXIMAB [Suspect]
     Active Substance: RITUXIMAB
     Indication: Lymphoma
     Dosage: UNK
     Route: 065
     Dates: start: 2016
  51. VENETOCLAX [Concomitant]
     Active Substance: VENETOCLAX
     Indication: Follicular lymphoma stage IV
     Dosage: UNK
     Route: 065
     Dates: start: 2016
  52. VENETOCLAX [Concomitant]
     Active Substance: VENETOCLAX
     Indication: Lymphoma

REACTIONS (17)
  - Death [Fatal]
  - Bacteraemia [Recovered/Resolved]
  - Bronchopulmonary aspergillosis [Recovered/Resolved]
  - Viral infection [Recovered/Resolved]
  - Erysipelas [Recovered/Resolved]
  - Rebound effect [Unknown]
  - Oral fungal infection [Unknown]
  - Immune system disorder [Unknown]
  - Opportunistic infection [Unknown]
  - Oral fungal infection [Recovered/Resolved]
  - Dry eye [Unknown]
  - Stomatitis [Unknown]
  - Dermatitis [Unknown]
  - Therapy partial responder [Unknown]
  - Product use in unapproved indication [Unknown]
  - Product use in unapproved indication [Unknown]
  - Off label use [Recovered/Resolved]
